FAERS Safety Report 6193290-9 (Version None)
Quarter: 2009Q2

REPORT INFORMATION
  Report Type: 
  Country: None (occurrence: None)
  Receive Date: 20090518
  Receipt Date: 20090514
  Transmission Date: 20091009
  Serious: Yes (Other)
  Sender: FDA-Public Use
  Company Number: DE-B.I. PHARMACEUTICALS,INC./RIDGEFIELD-2009-DE-03780DE

PATIENT
  Age: 48 Year
  Sex: Female
  Weight: 70 kg

DRUGS (6)
  1. MICARDIS [Suspect]
     Dosage: 3ANZ
     Route: 048
  2. ASPIRIN [Suspect]
     Dosage: 10ANZ
     Route: 048
  3. GRIPPOSTAD C [Suspect]
     Dosage: 24ANZ
     Route: 048
  4. L THYROXIN 100 [Suspect]
     Dosage: 5ANZ
     Route: 048
  5. LIMPTAR [Suspect]
     Dosage: 10ANZ
     Route: 048
  6. TOGAL [Suspect]
     Dosage: 10ANZ
     Route: 048

REACTIONS (4)
  - DRUG ABUSE [None]
  - FATIGUE [None]
  - OVERDOSE [None]
  - SUICIDE ATTEMPT [None]
